FAERS Safety Report 5366837-X (Version None)
Quarter: 2007Q2

REPORT INFORMATION
  Report Type: 
  Country: None (occurrence: None)
  Receive Date: 20070622
  Receipt Date: 20061211
  Transmission Date: 20071010
  Serious: No
  Sender: FDA-Public Use
  Company Number: US-ASTRAZENECA-2006UW27366

PATIENT
  Age: 16 Year
  Sex: Male
  Weight: 86.2 kg

DRUGS (1)
  1. RHINOCORT [Suspect]
     Indication: EAR DISORDER
     Dosage: 1 SPRAY PER NOSTRIL BID
     Route: 045
     Dates: start: 20061207

REACTIONS (2)
  - HEADACHE [None]
  - PHARYNGOLARYNGEAL PAIN [None]
